FAERS Safety Report 20955397 (Version 1)
Quarter: 2022Q2

REPORT INFORMATION
  Report Type: Spontaneous
  Country: US (occurrence: None)
  Receive Date: 20220613
  Receipt Date: 20220613
  Transmission Date: 20220721
  Serious: Yes (Death)
  Sender: FDA-Public Use
  Company Number: None

PATIENT
  Age: 69 Year
  Sex: Female
  Weight: 99.5 kg

DRUGS (5)
  1. TISOTUMAB VEDOTIN [Suspect]
     Active Substance: TISOTUMAB VEDOTIN
     Indication: Cervix cancer metastatic
     Dosage: FREQUENCY : ONCE;?
     Route: 042
     Dates: start: 20220601, end: 20220601
  2. BRIMONIDINE [Concomitant]
     Active Substance: BRIMONIDINE TARTRATE
  3. DEXAMETHASONE [Concomitant]
     Active Substance: DEXAMETHASONE
  4. ARTIFICIAL TEARS [Concomitant]
     Active Substance: GLYCERIN\HYPROMELLOSES\POLYETHYLENE GLYCOL 400
  5. Oral duloxetine [Concomitant]

REACTIONS (8)
  - Sudden death [None]
  - Nausea [None]
  - Retching [None]
  - Abdominal pain [None]
  - Gait disturbance [None]
  - Constipation [None]
  - Therapy non-responder [None]
  - Fall [None]

NARRATIVE: CASE EVENT DATE: 20220605
